FAERS Safety Report 14432656 (Version 1)
Quarter: 2018Q1

REPORT INFORMATION
  Report Type: Spontaneous
  Country: US (occurrence: US)
  Receive Date: 20180124
  Receipt Date: 20180124
  Transmission Date: 20180509
  Serious: Yes (Other)
  Sender: FDA-Public Use
  Company Number: US-PFIZER INC-2018027988

PATIENT
  Sex: Female

DRUGS (1)
  1. EFFEXOR XR [Suspect]
     Active Substance: VENLAFAXINE HYDROCHLORIDE
     Dosage: 75 MG, UNK (PERIODICALLY)
     Dates: start: 201703, end: 201712

REACTIONS (7)
  - Withdrawal syndrome [Unknown]
  - Condition aggravated [Unknown]
  - Influenza like illness [Unknown]
  - Chest pain [Unknown]
  - Angina pectoris [Unknown]
  - Headache [Unknown]
  - Dyspnoea [Unknown]

NARRATIVE: CASE EVENT DATE: 2017
